FAERS Safety Report 19163671 (Version 1)
Quarter: 2021Q2

REPORT INFORMATION
  Report Type: Spontaneous
  Country: GB (occurrence: GB)
  Receive Date: 20210421
  Receipt Date: 20210421
  Transmission Date: 20210717
  Serious: Yes (Other)
  Sender: FDA-Public Use
  Company Number: GB-HIKMA PHARMACEUTICALS USA INC.-GB-H14001-21-54166

PATIENT
  Age: 31 Year
  Sex: Male

DRUGS (3)
  1. METHYLPREDNISOLONE. [Suspect]
     Active Substance: METHYLPREDNISOLONE
     Dosage: TAPERED AND STOPPED IN JULY 2019 (DURATION STEROID WEAN: 8 MONTHS)
     Route: 065
     Dates: start: 2018, end: 201907
  2. METHYLPREDNISOLONE. [Suspect]
     Active Substance: METHYLPREDNISOLONE
     Indication: MYELITIS TRANSVERSE
     Dosage: UNKNOWN
     Route: 042
     Dates: start: 2018, end: 2018
  3. PRAZIQUANTEL. [Concomitant]
     Active Substance: PRAZIQUANTEL
     Indication: SCHISTOSOMIASIS
     Route: 065
     Dates: start: 2018, end: 2018

REACTIONS (7)
  - Blood glucose increased [Unknown]
  - Anxiety [Unknown]
  - Acne cystic [Unknown]
  - Transaminases increased [Unknown]
  - Insomnia [Unknown]
  - Folliculitis [Unknown]
  - Cushingoid [Unknown]
